FAERS Safety Report 25485651 (Version 1)
Quarter: 2025Q2

REPORT INFORMATION
  Report Type: Spontaneous
  Country: SE (occurrence: SE)
  Receive Date: 20250626
  Receipt Date: 20250626
  Transmission Date: 20250717
  Serious: No
  Sender: ASTELLAS
  Company Number: SE-ASTELLAS-2025-AER-033730

PATIENT
  Age: 69 Year
  Sex: Female

DRUGS (1)
  1. VEOZAH [Suspect]
     Active Substance: FEZOLINETANT
     Indication: Product used for unknown indication
     Route: 050

REACTIONS (1)
  - Alanine aminotransferase increased [Recovering/Resolving]
